FAERS Safety Report 7669198-6 (Version None)
Quarter: 2011Q3

REPORT INFORMATION
  Report Type: 
  Country: None (occurrence: None)
  Receive Date: 20110808
  Receipt Date: 20110728
  Transmission Date: 20111222
  Serious: Yes (Other)
  Sender: FDA-Public Use
  Company Number: PHHO2011FR01511

PATIENT
  Sex: Female

DRUGS (4)
  1. CLONAZEPAM [Concomitant]
     Indication: PARAESTHESIA
     Dosage: 1 DF, QD
     Dates: start: 20020926
  2. MIRENA [Concomitant]
     Indication: CONTRACEPTION
     Dosage: 1 DF, QD
     Dates: start: 20060101
  3. GILENYA [Suspect]
     Indication: MULTIPLE SCLEROSIS
     Dosage: DOSE BLINDED
     Route: 048
     Dates: start: 20081218, end: 20100228
  4. GILENYA [Suspect]
     Dosage: 0.5 MG, QD
     Route: 048
     Dates: start: 20100301

REACTIONS (1)
  - BASAL CELL CARCINOMA [None]
